FAERS Safety Report 14071139 (Version 1)
Quarter: 2017Q4

REPORT INFORMATION
  Report Type: Spontaneous
  Country: US (occurrence: US)
  Receive Date: 20171010
  Receipt Date: 20171010
  Transmission Date: 20180321
  Serious: No
  Sender: FDA-Public Use
  Company Number: US-JNJFOC-20170927465

PATIENT
  Sex: Female
  Weight: 55 kg

DRUGS (16)
  1. LEVOTHYROXINE. [Concomitant]
     Active Substance: LEVOTHYROXINE
  2. ULTRAM [Concomitant]
     Active Substance: TRAMADOL HYDROCHLORIDE
  3. CENTRUM SILVER [Concomitant]
     Active Substance: MINERALS\VITAMINS
  4. TRANXENE [Concomitant]
     Active Substance: CLORAZEPATE DIPOTASSIUM
  5. LASIX [Concomitant]
     Active Substance: FUROSEMIDE
  6. TOCOPHEROL [Concomitant]
     Active Substance: TOCOPHEROL
  7. ASPIRIN. [Concomitant]
     Active Substance: ASPIRIN
  8. VITAMIN B COMPLEX [Concomitant]
     Active Substance: CYANOCOBALAMIN\DEXPANTHENOL\NIACINAMIDE\PYRIDOXINE HYDROCHLORIDE\RIBOFLAVIN 5^-PHOSPHATE SODIUM\THIAMINE HYDROCHLORIDE\VITAMIN B COMPLEX
  9. FISH OIL [Concomitant]
     Active Substance: FISH OIL
  10. SALMO SALAR OIL [Concomitant]
     Active Substance: ATLANTIC SALMON OIL
  11. PRILOSEC [Concomitant]
     Active Substance: OMEPRAZOLE MAGNESIUM
  12. IMBRUVICA [Suspect]
     Active Substance: IBRUTINIB
     Indication: WALDENSTROM^S MACROGLOBULINAEMIA
     Route: 048
     Dates: start: 201704, end: 201706
  13. DULCOLAX NOS [Concomitant]
     Active Substance: BISACODYL OR DOCUSATE SODIUM
  14. CARVEDILOL. [Concomitant]
     Active Substance: CARVEDILOL
  15. SALBUTAMOL SULFATE [Concomitant]
     Active Substance: ALBUTEROL SULFATE
  16. POTASSIUM [Concomitant]
     Active Substance: POTASSIUM

REACTIONS (14)
  - Muscle spasms [Unknown]
  - Arthropathy [Unknown]
  - Contusion [Unknown]
  - Cough [Unknown]
  - Chronic obstructive pulmonary disease [Not Recovered/Not Resolved]
  - Headache [Unknown]
  - Epistaxis [Unknown]
  - Fatigue [Unknown]
  - Nausea [Unknown]
  - Pruritus [Unknown]
  - Stomatitis [Unknown]
  - Diarrhoea [Unknown]
  - Sinusitis [Unknown]
  - Dizziness [Unknown]
